FAERS Safety Report 18198374 (Version 1)
Quarter: 2020Q3

REPORT INFORMATION
  Report Type: Spontaneous
  Country: US (occurrence: US)
  Receive Date: 20200826
  Receipt Date: 20200826
  Transmission Date: 20201103
  Serious: Yes (Other)
  Sender: FDA-Public Use
  Company Number: None

PATIENT
  Age: 38 Year
  Sex: Male
  Weight: 112.5 kg

DRUGS (4)
  1. TYLENOL [Concomitant]
     Active Substance: ACETAMINOPHEN
  2. MELATONIN [Concomitant]
     Active Substance: MELATONIN
  3. LAMICTAL [Concomitant]
     Active Substance: LAMOTRIGINE
  4. BUPROPION XL [Suspect]
     Active Substance: BUPROPION HYDROCHLORIDE
     Indication: BIPOLAR II DISORDER
     Dosage: ?          QUANTITY:1 TABLET(S);?
     Route: 048
     Dates: start: 20200726

REACTIONS (4)
  - Product odour abnormal [None]
  - Product substitution issue [None]
  - Drug ineffective [None]
  - Depression [None]

NARRATIVE: CASE EVENT DATE: 20200820
